FAERS Safety Report 8784469 (Version 1)
Quarter: 2012Q4

REPORT INFORMATION
  Report Type: Report from Study
  Country: US (occurrence: US)
  Receive Date: 20120913
  Receipt Date: 20120913
  Transmission Date: 20130627
  Serious: Yes (Hospitalization, Other)
  Sender: FDA-Public Use
  Company Number: US-PFIZER INC-2011020080

PATIENT
  Age: 86 Year
  Sex: Female
  Weight: 53.97 kg

DRUGS (3)
  1. LYRICA [Suspect]
     Indication: NEUROPATHY PERIPHERAL
     Dosage: 200 mg, 3x/day
     Dates: start: 2009
  2. LYRICA [Suspect]
     Indication: MUSCLE SPASMS
  3. LYRICA [Suspect]
     Indication: NERVE INJURY

REACTIONS (7)
  - Cardiac failure [Unknown]
  - Heart rate irregular [Unknown]
  - Aphagia [Unknown]
  - Insomnia [Unknown]
  - Weight decreased [Unknown]
  - Pain [Unknown]
  - Muscle spasms [Recovered/Resolved]
